FAERS Safety Report 4576696-0 (Version None)
Quarter: 2005Q1

REPORT INFORMATION
  Report Type: 
  Country: None (occurrence: None)
  Receive Date: 20050210
  Receipt Date: 20050131
  Transmission Date: 20050727
  Serious: Yes (Death, Hospitalization, Other)
  Sender: FDA-Public Use
  Company Number: BR-ABBOTT-05P-020-0289067-00

PATIENT
  Sex: Male

DRUGS (3)
  1. KALETRA [Suspect]
     Indication: HIV INFECTION
     Dosage: 1000/400MG
     Dates: start: 20031110, end: 20040411
  2. KALETRA [Suspect]
     Route: 048
     Dates: start: 20031110
  3. FLUCONAZOLE [Concomitant]
     Indication: CANDIDIASIS
     Route: 042
     Dates: start: 20040120

REACTIONS (6)
  - CACHEXIA [None]
  - DEHYDRATION [None]
  - DYSPHAGIA [None]
  - PNEUMONIA [None]
  - RESPIRATORY FAILURE [None]
  - TOXOPLASMOSIS [None]
